FAERS Safety Report 9596387 (Version 1)
Quarter: 2013Q4

REPORT INFORMATION
  Report Type: Spontaneous
  Country: US (occurrence: US)
  Receive Date: 20131004
  Receipt Date: 20131004
  Transmission Date: 20140711
  Serious: Yes (Hospitalization)
  Sender: FDA-Public Use
  Company Number: US-B.I. PHARMACEUTICALS,INC./RIDGEFIELD-2013-BI-30914BP

PATIENT
  Sex: Female

DRUGS (1)
  1. MICARDIS [Suspect]
     Route: 048

REACTIONS (2)
  - Fall [Unknown]
  - Injury [Unknown]
